FAERS Safety Report 15767822 (Version 4)
Quarter: 2019Q2

REPORT INFORMATION
  Report Type: Report from Study
  Country: BE (occurrence: BE)
  Receive Date: 20181227
  Receipt Date: 20190606
  Transmission Date: 20190711
  Serious: Yes (Hospitalization, Other)
  Sender: FDA-Public Use
  Company Number: BE-MYLANLABS-2018M1095961

PATIENT
  Age: 76 Year
  Sex: Female

DRUGS (25)
  1. PAPAVERINE [Concomitant]
     Active Substance: PAPAVERINE
     Dosage: UNK
     Route: 065
     Dates: start: 2009, end: 201802
  2. TRIBVIT [Concomitant]
     Active Substance: CYANOCOBALAMIN\FOLIC ACID\PYRIDOXINE HYDROCHLORIDE
     Dosage: UNK
     Route: 065
     Dates: start: 20180216
  3. BEVACIZUMAB. [Suspect]
     Active Substance: BEVACIZUMAB
     Dosage: 740.25 MILLIGRAM, 3XW
     Route: 042
     Dates: start: 20180302
  4. SPIRONOLACTONE. [Concomitant]
     Active Substance: SPIRONOLACTONE
     Dosage: UNK
  5. FLUDEX                             /00340101/ [Concomitant]
     Active Substance: INDAPAMIDE
     Dosage: UNK
     Route: 065
     Dates: start: 20180806
  6. COLOFIBER [Concomitant]
     Dosage: UNK
     Route: 065
     Dates: start: 20180216
  7. DOMPERIDONE [Concomitant]
     Active Substance: DOMPERIDONE
     Dosage: UNK
     Route: 065
     Dates: start: 20180216
  8. CARBOPLATIN. [Suspect]
     Active Substance: CARBOPLATIN
     Dosage: UNK
     Route: 065
     Dates: start: 20171222
  9. CARBOPLATIN. [Suspect]
     Active Substance: CARBOPLATIN
     Dosage: 1 DOSAGE FORM, 3XW
     Route: 042
     Dates: start: 20180209
  10. ARANESP [Concomitant]
     Active Substance: DARBEPOETIN ALFA
     Dosage: UNK
     Route: 065
     Dates: start: 20180209, end: 20180209
  11. DIAZEPAM. [Concomitant]
     Active Substance: DIAZEPAM
     Dosage: UNK
     Route: 065
     Dates: start: 20180216
  12. INJECTAFER [Concomitant]
     Active Substance: FERRIC CARBOXYMALTOSE
     Dosage: UNK
     Route: 065
     Dates: start: 20180209, end: 20180209
  13. CARBOPLATIN. [Suspect]
     Active Substance: CARBOPLATIN
     Indication: OVARIAN CANCER
     Dosage: UNK
     Route: 065
     Dates: start: 20170707
  14. BEVACIZUMAB. [Suspect]
     Active Substance: BEVACIZUMAB
     Indication: OVARIAN CANCER
     Dosage: 1 DOSAGE FORM, Q3W
     Route: 042
     Dates: start: 20171222
  15. PANTOPRAZOL                        /01263201/ [Concomitant]
     Active Substance: PANTOPRAZOLE
     Dosage: UNK
     Dates: start: 20061002
  16. PARACETAMOL [Concomitant]
     Active Substance: ACETAMINOPHEN
     Indication: PAIN IN EXTREMITY
     Dosage: UNK
     Route: 065
     Dates: start: 20180209, end: 20180212
  17. PACLITAXEL. [Suspect]
     Active Substance: PACLITAXEL
     Dosage: UNK
     Route: 065
     Dates: start: 20171222
  18. PACLITAXEL. [Suspect]
     Active Substance: PACLITAXEL
     Dosage: 1 DOSAGE FORM, 3XW
     Route: 042
     Dates: start: 20180209
  19. BEVACIZUMAB. [Suspect]
     Active Substance: BEVACIZUMAB
     Dosage: 766.5 MILLIGRAM, 3XW
     Route: 042
     Dates: start: 20180504
  20. D-CURE [Concomitant]
     Active Substance: CHOLECALCIFEROL
     Indication: PROPHYLAXIS
  21. PACLITAXEL. [Suspect]
     Active Substance: PACLITAXEL
     Indication: OVARIAN CANCER
     Dosage: UNK
     Route: 065
     Dates: start: 20170707
  22. GASTRICALM [Concomitant]
     Dosage: UNK
     Route: 065
     Dates: start: 20180219
  23. INJECTAFER [Concomitant]
     Active Substance: FERRIC CARBOXYMALTOSE
     Dosage: UNK
     Route: 065
     Dates: start: 20180309, end: 20180309
  24. DOMPERIDONE [Concomitant]
     Active Substance: DOMPERIDONE
     Dosage: UNK
     Route: 065
     Dates: start: 20180806
  25. BISOPROLOL [Concomitant]
     Active Substance: BISOPROLOL
     Dosage: UNK
     Route: 065
     Dates: start: 20180302

REACTIONS (21)
  - Emotional distress [Recovered/Resolved]
  - Diarrhoea [Recovered/Resolved]
  - Oedema peripheral [Not Recovered/Not Resolved]
  - Viral infection [Recovered/Resolved]
  - Constipation [Recovered/Resolved]
  - Insomnia [Not Recovered/Not Resolved]
  - Nausea [Not Recovered/Not Resolved]
  - Dyspepsia [Not Recovered/Not Resolved]
  - Fatigue [Not Recovered/Not Resolved]
  - Seroma [Recovering/Resolving]
  - Arthralgia [Not Recovered/Not Resolved]
  - Alopecia [Not Recovered/Not Resolved]
  - Hyponatraemia [Recovered/Resolved]
  - Peripheral sensory neuropathy [Not Recovered/Not Resolved]
  - Hypokalaemia [Recovered/Resolved]
  - Hypertension [Not Recovered/Not Resolved]
  - Pain in extremity [Recovered/Resolved]
  - Proctalgia [Not Recovered/Not Resolved]
  - Stomatitis [Not Recovered/Not Resolved]
  - Hypotension [Recovered/Resolved]
  - Urinary tract infection [Not Recovered/Not Resolved]

NARRATIVE: CASE EVENT DATE: 20171229
